FAERS Safety Report 9924009 (Version 1)
Quarter: 2014Q1

REPORT INFORMATION
  Report Type: Spontaneous
  Country: MX (occurrence: MX)
  Receive Date: 20140225
  Receipt Date: 20140225
  Transmission Date: 20141002
  Serious: Yes (Hospitalization, Disabling)
  Sender: FDA-Public Use
  Company Number: MX-B.I. PHARMACEUTICALS,INC./RIDGEFIELD-2014-BI-07704MX

PATIENT
  Age: 52 Year
  Sex: Female
  Weight: 77 kg

DRUGS (6)
  1. PRADAXAR [Suspect]
     Indication: CEREBROVASCULAR ACCIDENT PROPHYLAXIS
     Dosage: 300 MG
     Route: 048
     Dates: start: 201311, end: 20140206
  2. PRADAXAR [Suspect]
     Indication: ATRIAL FIBRILLATION
  3. DIOVAN [Concomitant]
     Indication: HYPERTENSION
     Route: 048
  4. FUROSEMIDE [Concomitant]
     Indication: NEPHROTIC SYNDROME
     Route: 048
     Dates: start: 201312
  5. ATORVASTATINE [Concomitant]
     Indication: DYSLIPIDAEMIA
     Route: 048
  6. INSULIN NPH [Concomitant]
     Indication: TYPE 2 DIABETES MELLITUS
     Route: 058

REACTIONS (2)
  - Ischaemic stroke [Not Recovered/Not Resolved]
  - Ischaemic stroke [Not Recovered/Not Resolved]
